FAERS Safety Report 23229254 (Version 2)
Quarter: 2023Q4

REPORT INFORMATION
  Report Type: Spontaneous
  Country: EG (occurrence: EG)
  Receive Date: 20231127
  Receipt Date: 20231201
  Transmission Date: 20240110
  Serious: Yes (Life-Threatening)
  Sender: FDA-Public Use
  Company Number: EG-NOVOPROD-1142597

PATIENT
  Sex: Female

DRUGS (1)
  1. INSULIN HUMAN [Suspect]
     Active Substance: INSULIN HUMAN
     Indication: Diabetes mellitus
     Dosage: 40-60U (THE MORNING DOSE IS 40U, 10U OR MORE IS TAKEN AT NIGHT ACCORDING TO BGL MEASUREMENT

REACTIONS (3)
  - Coma [Recovered/Resolved]
  - Device malfunction [Unknown]
  - Device delivery system issue [Unknown]
